FAERS Safety Report 23342852 (Version 1)
Quarter: 2023Q4

REPORT INFORMATION
  Report Type: Spontaneous
  Country: US (occurrence: US)
  Receive Date: 20231227
  Receipt Date: 20231227
  Transmission Date: 20240109
  Serious: Yes (Other)
  Sender: FDA-Public Use
  Company Number: US-AMGEN-USASP2023228294

PATIENT

DRUGS (3)
  1. PEGFILGRASTIM [Suspect]
     Active Substance: PEGFILGRASTIM
     Indication: Neutropenia
     Dosage: UNK UNK, AFTER CHEMO
     Route: 065
  2. PLINABULIN [Suspect]
     Active Substance: PLINABULIN
     Indication: Neutropenia
     Dosage: 40 MILLIGRAM
     Route: 042
  3. MELPHALAN [Concomitant]
     Active Substance: MELPHALAN
     Indication: Plasma cell myeloma

REACTIONS (2)
  - Febrile neutropenia [Unknown]
  - Hypertension [Recovered/Resolved]
